FAERS Safety Report 19436216 (Version 1)
Quarter: 2021Q2

REPORT INFORMATION
  Report Type: Spontaneous
  Country: JP (occurrence: JP)
  Receive Date: 20210618
  Receipt Date: 20210618
  Transmission Date: 20210717
  Serious: Yes (Hospitalization)
  Sender: FDA-Public Use
  Company Number: JP-FERRINGPH-2021FE03740

PATIENT
  Age: 42 Year
  Sex: Female

DRUGS (1)
  1. LUTINUS [Suspect]
     Active Substance: PROGESTERONE
     Indication: ASSISTED REPRODUCTIVE TECHNOLOGY
     Route: 067

REACTIONS (4)
  - Bladder neoplasm [Unknown]
  - Product administration error [Unknown]
  - Application site pain [Recovered/Resolved]
  - Cystitis noninfective [Unknown]

NARRATIVE: CASE EVENT DATE: 20210604
